FAERS Safety Report 15014665 (Version 1)
Quarter: 2018Q2

REPORT INFORMATION
  Report Type: Spontaneous
  Country: US (occurrence: US)
  Receive Date: 20180615
  Receipt Date: 20180615
  Transmission Date: 20180711
  Serious: Yes (Death, Life-Threatening, Other)
  Sender: FDA-Public Use
  Company Number: US-ACCORD-068274

PATIENT
  Age: 79 Year
  Sex: Female

DRUGS (6)
  1. ANASTROZOLE. [Suspect]
     Active Substance: ANASTROZOLE
     Indication: FALLOPIAN TUBE CANCER STAGE III
  2. GEMCITABINE/GEMCITABINE HYDROCHLORIDE [Suspect]
     Active Substance: GEMCITABINE\GEMCITABINE HYDROCHLORIDE
     Indication: FALLOPIAN TUBE CANCER STAGE III
  3. TAMOXIFEN [Suspect]
     Active Substance: TAMOXIFEN
     Indication: FALLOPIAN TUBE CANCER STAGE III
  4. PACLITAXEL/PACLITAXEL LIPOSOME [Suspect]
     Active Substance: PACLITAXEL
     Indication: FALLOPIAN TUBE CANCER STAGE III
     Dosage: INITIALLY RECEIVED 6 CYCLES FOR STAGE IIIC FALLOPIAN TUBE CARCINOMA
  5. DOXORUBICIN [Suspect]
     Active Substance: DOXORUBICIN
     Indication: FALLOPIAN TUBE CANCER STAGE III
     Dosage: LIPOSOMAL DOXORUBICIN
  6. CARBOPLATIN. [Suspect]
     Active Substance: CARBOPLATIN
     Indication: FALLOPIAN TUBE CANCER STAGE III
     Dosage: INITIALLY RECEIVED 6 CYCLES FOR STAGE IIIC FALLOPIAN TUBE CARCINOMA

REACTIONS (1)
  - Acute myeloid leukaemia [Fatal]

NARRATIVE: CASE EVENT DATE: 2015
